FAERS Safety Report 8516884 (Version 2)
Quarter: 2014Q4

REPORT INFORMATION
  Report Type: Spontaneous
  Country: US (occurrence: US)
  Receive Date: 20120417
  Receipt Date: 20141121
  Transmission Date: 20150529
  Serious: Yes (Other)
  Sender: FDA-Public Use
  Company Number: US-GLAXOSMITHKLINE-A0934499A

PATIENT
  Sex: Female

DRUGS (1)
  1. AVANDIA [Suspect]
     Active Substance: ROSIGLITAZONE MALEATE
     Indication: DIABETES MELLITUS
     Dosage: 4 MG, UNK
     Route: 048
     Dates: start: 200209, end: 20030420

REACTIONS (5)
  - Cardiac failure congestive [Unknown]
  - Congestive cardiomyopathy [Unknown]
  - Myocardial infarction [Unknown]
  - Angina unstable [Unknown]
  - Myocardial ischaemia [Unknown]
